FAERS Safety Report 11264978 (Version 1)
Quarter: 2015Q3

REPORT INFORMATION
  Report Type: Spontaneous
  Country: US (occurrence: US)
  Receive Date: 20150713
  Receipt Date: 20150713
  Transmission Date: 20151125
  Serious: No
  Sender: FDA-Public Use
  Company Number: US-TEVA-577308ACC

PATIENT
  Sex: Female

DRUGS (4)
  1. HYDROXYCUT [Concomitant]
     Active Substance: HERBALS
     Indication: SUPPLEMENTATION THERAPY
  2. PLAN B ONE-STEP [Suspect]
     Active Substance: LEVONORGESTREL
     Indication: POST COITAL CONTRACEPTION
     Dosage: 1.5 MILLIGRAM DAILY;
     Route: 048
     Dates: start: 20150702, end: 20150702
  3. VITAMINS [Concomitant]
     Active Substance: VITAMINS
     Route: 065
  4. PROTEIN SHAKES [Concomitant]
     Route: 065

REACTIONS (2)
  - Menstruation irregular [Recovered/Resolved]
  - Breast tenderness [Not Recovered/Not Resolved]

NARRATIVE: CASE EVENT DATE: 20150706
